FAERS Safety Report 6833540-6 (Version None)
Quarter: 2010Q3

REPORT INFORMATION
  Report Type: 
  Country: None (occurrence: None)
  Receive Date: 20100712
  Receipt Date: 20070328
  Transmission Date: 20110219
  Serious: No
  Sender: FDA-Public Use
  Company Number: US-PFIZER INC-2007025658

PATIENT
  Sex: Female
  Weight: 88.45 kg

DRUGS (9)
  1. CHANTIX [Suspect]
     Indication: SMOKING CESSATION THERAPY
     Dates: start: 20070209
  2. SYNTHROID [Concomitant]
  3. NEURONTIN [Concomitant]
  4. EFFEXOR XR [Concomitant]
  5. NEXIUM [Concomitant]
  6. QUININE [Concomitant]
  7. MOBIC [Concomitant]
  8. LORTAB [Concomitant]
  9. HYDROCHLOROTHIAZIDE [Concomitant]
     Indication: HYPERTENSION

REACTIONS (1)
  - NAUSEA [None]
